FAERS Safety Report 9259613 (Version 1)
Quarter: 2013Q2

REPORT INFORMATION
  Report Type: Report from Study
  Country: CA (occurrence: CA)
  Receive Date: 20130429
  Receipt Date: 20130429
  Transmission Date: 20140414
  Serious: Yes (Other)
  Sender: FDA-Public Use
  Company Number: CA-ROCHE-1215243

PATIENT
  Age: 69 Year
  Sex: Male
  Weight: 79.4 kg

DRUGS (6)
  1. RITUXAN [Suspect]
     Indication: RHEUMATOID ARTHRITIS
     Route: 042
     Dates: start: 20121025, end: 20121108
  2. PLAVIX [Concomitant]
  3. PANTOLOC [Concomitant]
  4. ELTROXIN [Concomitant]
  5. CELEBREX [Concomitant]
  6. PLAQUENIL [Concomitant]

REACTIONS (7)
  - Dyspnoea [Not Recovered/Not Resolved]
  - Chills [Not Recovered/Not Resolved]
  - Pruritus [Not Recovered/Not Resolved]
  - Wheezing [Not Recovered/Not Resolved]
  - Hypotension [Not Recovered/Not Resolved]
  - Dizziness [Not Recovered/Not Resolved]
  - Oxygen supplementation [Not Recovered/Not Resolved]
